FAERS Safety Report 21053226 (Version 2)
Quarter: 2022Q3

REPORT INFORMATION
  Report Type: Spontaneous
  Country: US (occurrence: US)
  Receive Date: 20220707
  Receipt Date: 20220708
  Transmission Date: 20221027
  Serious: No
  Sender: FDA-Public Use
  Company Number: US-PFIZER INC-202200934759

PATIENT
  Age: 84 Year
  Sex: Male
  Weight: 81.65 kg

DRUGS (2)
  1. PAXLOVID [Suspect]
     Active Substance: NIRMATRELVIR\RITONAVIR
     Indication: COVID-19 treatment
     Dosage: 3 DF, 2X/DAY (THREE TABLETS IN THE MORNING AND THREE TABLETS IN THE EVENING, BY MOUTH)
     Route: 048
     Dates: start: 20220702, end: 20220705
  2. ZOFRAN [Concomitant]
     Active Substance: ONDANSETRON HYDROCHLORIDE
     Indication: Nausea
     Dosage: UNK, 1X/DAY
     Route: 048
     Dates: start: 20220702

REACTIONS (5)
  - Diarrhoea [Unknown]
  - Hyperhidrosis [Unknown]
  - Gait disturbance [Unknown]
  - Tremor [Unknown]
  - Nausea [Unknown]

NARRATIVE: CASE EVENT DATE: 20220705
